FAERS Safety Report 20171097 (Version 2)
Quarter: 2022Q3

REPORT INFORMATION
  Report Type: Other
  Country: CN (occurrence: None)
  Receive Date: 20211210
  Receipt Date: 20220722
  Transmission Date: 20221027
  Serious: Yes (Hospitalization)
  Sender: FDA-Public Use
  Company Number: CN-ROCHE-2977292

PATIENT
  Age: 54 Year
  Sex: Male

DRUGS (3)
  1. BEVACIZUMAB [Suspect]
     Active Substance: BEVACIZUMAB
     Indication: Non-small cell lung cancer
     Dosage: 4 CYCLES, 21 DAYS FOR 1 CYCLE
     Route: 065
  2. CARBOPLATIN [Concomitant]
     Active Substance: CARBOPLATIN
     Indication: Non-small cell lung cancer
     Dosage: ON DAY 1 FOR 2 CYCLES?NEXT TREATMENT: AUC 5 ON DAY 2
  3. DOCETAXEL [Concomitant]
     Active Substance: DOCETAXEL
     Indication: Non-small cell lung cancer
     Dosage: ON DAY 1

REACTIONS (2)
  - Acquired tracheo-oesophageal fistula [Recovered/Resolved]
  - Pneumonia [Recovered/Resolved]
